FAERS Safety Report 9297678 (Version 1)
Quarter: 2013Q2

REPORT INFORMATION
  Report Type: Spontaneous
  Country: US (occurrence: None)
  Receive Date: 20130517
  Receipt Date: 20130517
  Transmission Date: 20140414
  Serious: No
  Sender: FDA-Public Use
  Company Number: None

PATIENT
  Age: 20 Year
  Sex: Male

DRUGS (1)
  1. MAX N-FUZE [Suspect]
     Dates: start: 201012, end: 20130315

REACTIONS (5)
  - Drug-induced liver injury [None]
  - Cholestasis [None]
  - Fatigue [None]
  - Insomnia [None]
  - Pruritus [None]
